FAERS Safety Report 5097012-4 (Version None)
Quarter: 2006Q3

REPORT INFORMATION
  Report Type: 
  Country: None (occurrence: None)
  Receive Date: 20060901
  Receipt Date: 20060901
  Transmission Date: 20061208
  Serious: Yes (Death, Life-Threatening)
  Sender: FDA-Public Use
  Company Number: None

PATIENT
  Age: 11 Month
  Sex: Male
  Weight: 8 kg

DRUGS (2)
  1. SODIUM CHLORIDE 0.9% [Suspect]
     Indication: CARDIAC ARREST
     Dosage: 2ML  ONCE IV BOLUS
     Route: 040
     Dates: start: 20060319, end: 20060319
  2. MORPHINE SUL INJ [Suspect]
     Indication: CARDIAC ARREST
     Dosage: 2ML ONCE IV BOLUS
     Route: 040
     Dates: start: 20060319, end: 20060319

REACTIONS (5)
  - CARDIAC ARREST [None]
  - MEDICATION ERROR [None]
  - PHARMACEUTICAL PRODUCT COMPLAINT [None]
  - SEPSIS [None]
  - WRONG DRUG ADMINISTERED [None]
